FAERS Safety Report 8179955-8 (Version None)
Quarter: 2012Q1

REPORT INFORMATION
  Report Type: 
  Country: None (occurrence: None)
  Receive Date: 20120229
  Receipt Date: 20120215
  Transmission Date: 20120608
  Serious: Yes (Other)
  Sender: FDA-Public Use
  Company Number: VER-2012-00068

PATIENT
  Age: 50 Year
  Sex: Female
  Weight: 129.2752 kg

DRUGS (9)
  1. CYCLOSET [Suspect]
     Indication: TYPE 2 DIABETES MELLITUS
     Dosage: SEE IMAGE
     Route: 048
     Dates: start: 20120103
  2. CYCLOSET [Suspect]
     Indication: TYPE 2 DIABETES MELLITUS
     Dosage: SEE IMAGE
     Route: 048
     Dates: start: 20111208, end: 20111210
  3. CYCLOSET [Suspect]
     Indication: TYPE 2 DIABETES MELLITUS
     Dosage: SEE IMAGE
     Route: 048
     Dates: start: 20111211
  4. METOPROLOL XL (METOPROLOL) [Concomitant]
  5. FUROSEMIDE [Concomitant]
  6. ASP NPH/ASPART 70/30(INSULIN ASPART, INSULIN ASPART PROTAMINE) [Concomitant]
  7. LISINOPRIL [Concomitant]
  8. METFORMIN HCL [Concomitant]
  9. METOLAZONE [Concomitant]

REACTIONS (2)
  - HYPOTENSION [None]
  - HYPOGLYCAEMIA [None]
